FAERS Safety Report 7559695-6 (Version None)
Quarter: 2011Q2

REPORT INFORMATION
  Report Type: 
  Country: None (occurrence: None)
  Receive Date: 20110621
  Receipt Date: 20110608
  Transmission Date: 20111010
  Serious: Yes (Hospitalization, Other)
  Sender: FDA-Public Use
  Company Number: US-ELI_LILLY_AND_COMPANY-US201106003292

PATIENT
  Sex: Male

DRUGS (1)
  1. ZYPREXA [Suspect]
     Dosage: 20 MG, QD
     Dates: start: 20000101

REACTIONS (3)
  - ARTHRITIS [None]
  - PAIN [None]
  - INTERVERTEBRAL DISC OPERATION [None]
